FAERS Safety Report 24051980 (Version 5)
Quarter: 2024Q4

REPORT INFORMATION
  Report Type: Spontaneous
  Country: US (occurrence: US)
  Receive Date: 20240704
  Receipt Date: 20241119
  Transmission Date: 20250114
  Serious: No
  Sender: PFIZER
  Company Number: US-PFIZER INC-202400203958

PATIENT
  Age: 5 Year
  Sex: Female
  Weight: 11.4 kg

DRUGS (1)
  1. GENOTROPIN [Suspect]
     Active Substance: SOMATROPIN
     Indication: Growth hormone deficiency
     Dosage: 0.5 MG, DAILY
     Route: 058
     Dates: start: 202002

REACTIONS (2)
  - Drug dose omission by device [Unknown]
  - Device breakage [Unknown]
